FAERS Safety Report 5625232-6 (Version None)
Quarter: 2008Q1

REPORT INFORMATION
  Report Type: 
  Country: None (occurrence: None)
  Receive Date: 20080208
  Receipt Date: 20080128
  Transmission Date: 20080703
  Serious: Yes (Other)
  Sender: FDA-Public Use
  Company Number: 2008-00333

PATIENT
  Age: 75 Year
  Sex: Female
  Weight: 48 kg

DRUGS (13)
  1. VELCADE [Suspect]
     Indication: MULTIPLE MYELOMA
     Dosage: 1.40 MG, INTRAVENOUS
     Route: 042
     Dates: start: 20070518, end: 20070919
  2. LEVOTHYROXINE SODIUM [Concomitant]
  3. SOTALOL HCL [Concomitant]
  4. LERCAN (LERCANIDIPINE) [Concomitant]
  5. FLECAINIDE ACETATE [Concomitant]
  6. BACTRIM DS [Concomitant]
  7. VALACYCLOVIR HCL [Concomitant]
  8. AREDIZ [Concomitant]
  9. DURAGESIC-100 [Concomitant]
  10. OXYCODONE HCL [Concomitant]
  11. EFFEXOR [Concomitant]
  12. LOVENOX [Concomitant]
  13. ARANESP [Concomitant]

REACTIONS (2)
  - DERMATITIS PSORIASIFORM [None]
  - LEUKOCYTOCLASTIC VASCULITIS [None]
